FAERS Safety Report 25196008 (Version 1)
Quarter: 2025Q2

REPORT INFORMATION
  Report Type: Spontaneous
  Country: PT (occurrence: PT)
  Receive Date: 20250415
  Receipt Date: 20250415
  Transmission Date: 20250717
  Serious: Yes (Life-Threatening, Hospitalization, Other)
  Sender: Steriscience PTE
  Company Number: PT-STERISCIENCE B.V.-2025-ST-000705

PATIENT
  Age: 63 Year
  Sex: Male

DRUGS (1)
  1. ROCURONIUM BROMIDE [Suspect]
     Active Substance: ROCURONIUM BROMIDE
     Indication: Neuromuscular blockade
     Route: 042

REACTIONS (7)
  - Respiratory arrest [None]
  - Respiratory distress [None]
  - Paralysis [None]
  - Muscle disorder [None]
  - Recurrence of neuromuscular blockade [None]
  - Oedema peripheral [None]
  - Infusion site extravasation [Unknown]
